FAERS Safety Report 20024181 (Version 1)
Quarter: 2021Q4

REPORT INFORMATION
  Report Type: Other
  Country: FR (occurrence: None)
  Receive Date: 20211102
  Receipt Date: 20211102
  Transmission Date: 20220303
  Serious: Yes (Hospitalization, Other)
  Sender: FDA-Public Use
  Company Number: FR-Neopharma Inc-000653

PATIENT
  Age: 30 Year
  Sex: Female

DRUGS (6)
  1. AMOXICILLIN [Suspect]
     Active Substance: AMOXICILLIN
     Indication: Clostridium bacteraemia
     Route: 042
  2. AMOXICILLIN\CLAVULANIC ACID [Suspect]
     Active Substance: AMOXICILLIN\CLAVULANIC ACID
     Indication: Clostridium bacteraemia
  3. METRONIDAZOLE [Suspect]
     Active Substance: METRONIDAZOLE
     Indication: Clostridium bacteraemia
     Route: 042
  4. CEFOTAXIME [Suspect]
     Active Substance: CEFOTAXIME SODIUM
     Indication: Clostridium bacteraemia
     Route: 042
  5. CLINDAMYCIN [Suspect]
     Active Substance: CLINDAMYCIN
     Indication: Clostridium bacteraemia
     Route: 042
  6. METRONIDAZOLE [Suspect]
     Active Substance: METRONIDAZOLE
     Indication: Clostridium bacteraemia
     Route: 042

REACTIONS (5)
  - Clostridium bacteraemia [Recovered/Resolved]
  - Disease recurrence [Recovered/Resolved]
  - Renal impairment [Unknown]
  - Acute myeloid leukaemia [Unknown]
  - Drug resistance [Unknown]
